FAERS Safety Report 19108390 (Version 1)
Quarter: 2021Q2

REPORT INFORMATION
  Report Type: Spontaneous
  Country: US (occurrence: US)
  Receive Date: 20210408
  Receipt Date: 20210408
  Transmission Date: 20210717
  Serious: Yes (Other)
  Sender: FDA-Public Use
  Company Number: None

PATIENT
  Age: 73 Year
  Sex: Male
  Weight: 97 kg

DRUGS (1)
  1. BLINATUMOMAB [Suspect]
     Active Substance: BLINATUMOMAB
     Indication: BASAL CELL CARCINOMA
     Route: 041
     Dates: start: 20210325, end: 20210326

REACTIONS (7)
  - Pyrexia [None]
  - Neurotoxicity [None]
  - Confusional state [None]
  - Tremor [None]
  - Aphasia [None]
  - Ataxia [None]
  - Tachycardia [None]

NARRATIVE: CASE EVENT DATE: 20210326
